FAERS Safety Report 8015896-4 (Version None)
Quarter: 2011Q4

REPORT INFORMATION
  Report Type: 
  Country: None (occurrence: None)
  Receive Date: 20111230
  Receipt Date: 20111219
  Transmission Date: 20120403
  Serious: Yes (Death)
  Sender: FDA-Public Use
  Company Number: US-PFIZER INC-2011311592

PATIENT
  Age: 27 Year
  Sex: Female

DRUGS (3)
  1. DIPHENHYDRAMINE HCL [Suspect]
     Dosage: UNK
  2. CITALOPRAM [Suspect]
     Dosage: UNK
  3. MORPHINE SULFATE [Suspect]
     Dosage: UNK

REACTIONS (3)
  - CARDIAC ARREST [None]
  - RESPIRATORY ARREST [None]
  - DRUG ABUSE [None]
